FAERS Safety Report 11153397 (Version 2)
Quarter: 2015Q2

REPORT INFORMATION
  Report Type: Report from Study
  Country: CA (occurrence: CA)
  Receive Date: 20150602
  Receipt Date: 20150611
  Transmission Date: 20150821
  Serious: Yes (Death, Other)
  Sender: FDA-Public Use
  Company Number: PHHY2014CA170070

PATIENT
  Age: 89 Year
  Sex: Female

DRUGS (2)
  1. SANDOSTATIN LAR DEPOT [Suspect]
     Active Substance: OCTREOTIDE ACETATE
     Indication: METASTATIC CARCINOID TUMOUR
     Dosage: 30 MG, EVERY 4 WEEKS
     Route: 030
     Dates: start: 20141021
  2. SANDOSTATIN LAR DEPOT [Suspect]
     Active Substance: OCTREOTIDE ACETATE
     Dosage: 20 MG, EVERY 4 WEEKS
     Route: 030
     Dates: end: 20150427

REACTIONS (11)
  - Terminal state [Unknown]
  - Blood pressure systolic increased [Unknown]
  - Movement disorder [Unknown]
  - Malaise [Unknown]
  - Sputum discoloured [Unknown]
  - Death [Fatal]
  - Body temperature decreased [Unknown]
  - Chills [Unknown]
  - Rhinorrhoea [Unknown]
  - Productive cough [Unknown]
  - Constipation [Unknown]

NARRATIVE: CASE EVENT DATE: 20141223
